FAERS Safety Report 9479411 (Version 3)
Quarter: 2013Q3

REPORT INFORMATION
  Report Type: Spontaneous
  Country: US (occurrence: US)
  Receive Date: 20130827
  Receipt Date: 20130918
  Transmission Date: 20140515
  Serious: No
  Sender: FDA-Public Use
  Company Number: US-PFIZER INC-2013247427

PATIENT
  Age: 75 Year
  Sex: Female
  Weight: 53.1 kg

DRUGS (12)
  1. CHANTIX [Suspect]
     Indication: SMOKING CESSATION THERAPY
     Dosage: UNK
  2. CARAFATE [Concomitant]
     Indication: ULCER
     Dosage: UNK
  3. SENNA [Concomitant]
     Indication: IRRITABLE BOWEL SYNDROME
     Dosage: UNK
  4. QUESTRAN [Concomitant]
     Indication: IRRITABLE BOWEL SYNDROME
     Dosage: UNK
  5. METFORMIN [Concomitant]
     Indication: DIABETES MELLITUS
     Dosage: UNK
  6. NORCO [Concomitant]
     Dosage: UNK
  7. VITAMIN B12 [Concomitant]
     Dosage: UNK
  8. DIAZEPAM [Concomitant]
     Dosage: UNK
  9. FLUOXETINE [Concomitant]
     Dosage: UNK
  10. LANSOPRAZOLE [Concomitant]
     Dosage: UNK
  11. LOVASTATIN [Concomitant]
     Dosage: UNK
  12. NAMENDA [Concomitant]
     Dosage: UNK

REACTIONS (4)
  - Joint swelling [Unknown]
  - Pain [Unknown]
  - Neuropathy peripheral [Unknown]
  - Irritable bowel syndrome [Unknown]
